FAERS Safety Report 14199916 (Version 1)
Quarter: 2017Q4

REPORT INFORMATION
  Report Type: Spontaneous
  Country: JP (occurrence: JP)
  Receive Date: 20171117
  Receipt Date: 20171117
  Transmission Date: 20180321
  Serious: Yes (Other)
  Sender: FDA-Public Use
  Company Number: JP-GLAXOSMITHKLINE-JP2017JPN173817

PATIENT
  Age: 3 Decade
  Sex: Female

DRUGS (1)
  1. LAMICTAL [Suspect]
     Active Substance: LAMOTRIGINE
     Indication: EPILEPSY
     Dosage: 15.6 G, SINGLE
     Route: 048

REACTIONS (6)
  - Seizure [Unknown]
  - Coma [Unknown]
  - Toxicity to various agents [Unknown]
  - Suicide attempt [Unknown]
  - Electrocardiogram abnormal [Unknown]
  - Intentional overdose [Unknown]
